FAERS Safety Report 4368973-3 (Version None)
Quarter: 2004Q2

REPORT INFORMATION
  Report Type: 
  Country: None (occurrence: None)
  Receive Date: 20040527
  Receipt Date: 20040517
  Transmission Date: 20050107
  Serious: Yes (Disabling)
  Sender: FDA-Public Use
  Company Number: 204525

PATIENT
  Age: 79 Year
  Sex: Female
  Weight: 119 kg

DRUGS (2)
  1. RITUXAN [Suspect]
     Indication: CHRONIC LYMPHOCYTIC LEUKAEMIA
     Dosage: INTRAVENOUS
     Route: 042
     Dates: start: 20030801, end: 20030908
  2. FLUDARABINE PHOSPHATE [Concomitant]

REACTIONS (2)
  - AMNESIA [None]
  - CSF PROTEIN INCREASED [None]
